FAERS Safety Report 7746459-3 (Version None)
Quarter: 2011Q3

REPORT INFORMATION
  Report Type: 
  Country: None (occurrence: None)
  Receive Date: 20110913
  Receipt Date: 20110907
  Transmission Date: 20111222
  Serious: Yes (Other)
  Sender: FDA-Public Use
  Company Number: US-BAYER-2011-083874

PATIENT
  Age: 71 Year
  Sex: Male
  Weight: 93 kg

DRUGS (5)
  1. COUMADIN [Concomitant]
  2. LISINOPRIL [Concomitant]
  3. ZOLOFT [Concomitant]
  4. ZOCOR [Concomitant]
  5. ALEVE (CAPLET) [Suspect]
     Indication: ARTHRITIS
     Dosage: 1 DF, BID
     Route: 048
     Dates: start: 20110831

REACTIONS (2)
  - HAEMORRHOIDAL HAEMORRHAGE [None]
  - HAEMATOCHEZIA [None]
